FAERS Safety Report 13586608 (Version 1)
Quarter: 2017Q2

REPORT INFORMATION
  Report Type: Spontaneous
  Country: JP (occurrence: JP)
  Receive Date: 20170526
  Receipt Date: 20170526
  Transmission Date: 20170830
  Serious: Yes (Death, Hospitalization)
  Sender: FDA-Public Use
  Company Number: JP-MITSUBISHI TANABE PHARMA CORPORATION-MTPC2016-0026867

PATIENT
  Age: 73 Year
  Sex: Male
  Weight: 57 kg

DRUGS (19)
  1. AMLODIN OD [Concomitant]
     Active Substance: AMLODIPINE BESYLATE
     Indication: HYPERTENSION
     Route: 048
     Dates: end: 20161007
  2. SENNOSIDE [Concomitant]
     Active Substance: SENNOSIDES
     Indication: CONSTIPATION
     Route: 048
     Dates: end: 20161007
  3. MAGMITT [Concomitant]
     Active Substance: MAGNESIUM OXIDE
     Indication: CONSTIPATION
     Route: 048
     Dates: end: 20161007
  4. BELSOMRA [Concomitant]
     Active Substance: SUVOREXANT
     Indication: INSOMNIA
     Route: 048
     Dates: end: 20161007
  5. RADICUT [Suspect]
     Active Substance: EDARAVONE
     Route: 041
     Dates: start: 20160905, end: 20160914
  6. YOKUKANSANKACHIMPIHANGE [Concomitant]
     Indication: PSYCHIATRIC SYMPTOM
     Route: 048
     Dates: start: 20160912, end: 20161007
  7. RILUZOLE. [Concomitant]
     Active Substance: RILUZOLE
     Indication: AMYOTROPHIC LATERAL SCLEROSIS
     Route: 048
     Dates: end: 20161009
  8. EQUA [Concomitant]
     Active Substance: VILDAGLIPTIN
     Indication: DIABETES MELLITUS
     Route: 048
     Dates: end: 20161007
  9. LIORESAL [Concomitant]
     Active Substance: BACLOFEN
     Indication: PARALYSIS
     Route: 048
     Dates: end: 20161009
  10. MUCODYNE [Concomitant]
     Active Substance: CARBOCYSTEINE
     Indication: PRODUCTIVE COUGH
     Route: 048
     Dates: end: 20161007
  11. SODIUM CHLORIDE. [Concomitant]
     Active Substance: SODIUM CHLORIDE
     Indication: ELECTROLYTE SUBSTITUTION THERAPY
     Route: 048
     Dates: end: 20161007
  12. RADICUT [Suspect]
     Active Substance: EDARAVONE
     Indication: AMYOTROPHIC LATERAL SCLEROSIS
     Route: 041
     Dates: start: 20151207
  13. RADICUT [Suspect]
     Active Substance: EDARAVONE
     Route: 041
     Dates: start: 20161003, end: 20161007
  14. TAKEPRON [Concomitant]
     Active Substance: LANSOPRAZOLE
     Indication: GASTROOESOPHAGEAL REFLUX DISEASE
     Route: 048
     Dates: end: 20161009
  15. RADICUT [Suspect]
     Active Substance: EDARAVONE
     Route: 041
     Dates: start: 20160709
  16. TOLEDOMIN [Concomitant]
     Active Substance: MILNACIPRAN HYDROCHLORIDE
     Indication: DYSPNOEA
     Route: 048
     Dates: end: 20161007
  17. RADICUT [Suspect]
     Active Substance: EDARAVONE
     Route: 041
     Dates: start: 20160523
  18. RADICUT [Suspect]
     Active Substance: EDARAVONE
     Route: 041
     Dates: start: 201608
  19. ZOLPIDEM TARTRATE. [Concomitant]
     Active Substance: ZOLPIDEM TARTRATE
     Indication: INSOMNIA
     Route: 048
     Dates: start: 20160903, end: 20161007

REACTIONS (2)
  - Nephrotic syndrome [Not Recovered/Not Resolved]
  - Sepsis [Fatal]

NARRATIVE: CASE EVENT DATE: 20161007
